FAERS Safety Report 11736224 (Version 1)
Quarter: 2015Q4

REPORT INFORMATION
  Report Type: Spontaneous
  Country: US (occurrence: US)
  Receive Date: 20151113
  Receipt Date: 20151113
  Transmission Date: 20160304
  Serious: Yes (Other)
  Sender: FDA-Public Use
  Company Number: US-JNJFOC-20151000811

PATIENT

DRUGS (4)
  1. BORTEZOMIB [Suspect]
     Active Substance: BORTEZOMIB
     Indication: ACUTE MYELOID LEUKAEMIA
     Dosage: ON DAY 1, 4, 8 AND 11
     Route: 058
  2. BORTEZOMIB [Suspect]
     Active Substance: BORTEZOMIB
     Indication: ACUTE MYELOID LEUKAEMIA RECURRENT
     Dosage: ON DAY 1, 4, 8 AND 11
     Route: 058
  3. DOXORUBICIN HYDROCHLORIDE. [Suspect]
     Active Substance: DOXORUBICIN HYDROCHLORIDE
     Indication: ACUTE MYELOID LEUKAEMIA RECURRENT
     Dosage: ON DAY 4
     Route: 042
  4. DOXORUBICIN HYDROCHLORIDE. [Suspect]
     Active Substance: DOXORUBICIN HYDROCHLORIDE
     Indication: ACUTE MYELOID LEUKAEMIA
     Dosage: ON DAY 4
     Route: 042

REACTIONS (4)
  - Infection [Unknown]
  - Peripheral sensory neuropathy [Unknown]
  - Haematotoxicity [Unknown]
  - Product use issue [Unknown]
